FAERS Safety Report 17962279 (Version 1)
Quarter: 2020Q2

REPORT INFORMATION
  Report Type: Spontaneous
  Country: US (occurrence: US)
  Receive Date: 20200629
  Receipt Date: 20200629
  Transmission Date: 20200714
  Serious: Yes (Death)
  Sender: FDA-Public Use
  Company Number: None

PATIENT
  Age: 79 Year
  Sex: Female

DRUGS (10)
  1. PRALUENT [Suspect]
     Active Substance: ALIROCUMAB
     Indication: ARTERIOSCLEROSIS
     Dosage: ?          OTHER FREQUENCY:EVERY 2 WEEKS;?
     Route: 058
     Dates: start: 20200313
  2. OMEPRAZOLE 20MG [Concomitant]
     Active Substance: OMEPRAZOLE
  3. ESCITALOPRAM [Concomitant]
     Active Substance: ESCITALOPRAM OXALATE
     Dates: start: 20180724
  4. FUROSEMIDE 40MG [Concomitant]
     Active Substance: FUROSEMIDE
     Dates: start: 20200428
  5. EZETIMIBE 10MG [Concomitant]
     Active Substance: EZETIMIBE
     Dates: start: 20200428
  6. CARVEDILOL 12.5MG [Concomitant]
     Active Substance: CARVEDILOL
     Dates: start: 20191124
  7. ENTRESTO 24-26MG [Concomitant]
     Dates: start: 20200129
  8. PRALUENT [Suspect]
     Active Substance: ALIROCUMAB
     Indication: HYPERLIPIDAEMIA
     Dosage: ?          OTHER FREQUENCY:EVERY 2 WEEKS;?
     Route: 058
     Dates: start: 20200313
  9. SPIRONOLACTONE 25MG [Concomitant]
     Active Substance: SPIRONOLACTONE
     Dates: start: 20200428
  10. ELIQUIS [Concomitant]
     Active Substance: APIXABAN
     Dates: start: 20191229

REACTIONS (1)
  - Death [None]

NARRATIVE: CASE EVENT DATE: 20200622
